FAERS Safety Report 9753887 (Version 2)
Quarter: 2013Q4

REPORT INFORMATION
  Report Type: Spontaneous
  Country: US (occurrence: US)
  Receive Date: 20131213
  Receipt Date: 20131213
  Transmission Date: 20140711
  Serious: No
  Sender: FDA-Public Use
  Company Number: US-GILEAD-2010-0027517

PATIENT
  Sex: Female

DRUGS (19)
  1. LETAIRIS [Suspect]
     Indication: PULMONARY ARTERIAL HYPERTENSION
     Route: 048
     Dates: start: 20090530
  2. REVATIO [Concomitant]
  3. NORVASC [Concomitant]
  4. NADOLOL [Concomitant]
  5. DYAZIDE [Concomitant]
  6. LEVETIRACETAM [Concomitant]
  7. IMURAN [Concomitant]
  8. PREDNISONE [Concomitant]
  9. LEVAQUIN [Concomitant]
  10. ZOVIRAX [Concomitant]
  11. KEPPRA [Concomitant]
  12. PLAQUENIL [Concomitant]
  13. LEVOTHROID [Concomitant]
  14. INTEGRA [Concomitant]
  15. CITRUCEL [Concomitant]
  16. KLOR-CON [Concomitant]
  17. FOLIC ACID [Concomitant]
  18. MULTIVITAMIN [Concomitant]
  19. VITAMIN C [Concomitant]

REACTIONS (1)
  - Menstruation delayed [Unknown]
